FAERS Safety Report 12651416 (Version 1)
Quarter: 2016Q3

REPORT INFORMATION
  Report Type: Spontaneous
  Country: US (occurrence: US)
  Receive Date: 20160815
  Receipt Date: 20160815
  Transmission Date: 20161109
  Serious: No
  Sender: FDA-Public Use
  Company Number: US-BEH-2016072224

PATIENT
  Sex: Female
  Weight: 88.89 kg

DRUGS (12)
  1. EPIPEN [Concomitant]
     Active Substance: EPINEPHRINE
  2. SINGULAIR [Concomitant]
     Active Substance: MONTELUKAST SODIUM
  3. HIZENTRA [Suspect]
     Active Substance: HUMAN IMMUNOGLOBULIN G
     Indication: IMMUNODEFICIENCY COMMON VARIABLE
     Dosage: 30 G, QW
     Route: 058
     Dates: start: 20101117
  4. ACETAMINOPHEN. [Concomitant]
     Active Substance: ACETAMINOPHEN
  5. PREDNISONE. [Concomitant]
     Active Substance: PREDNISONE
  6. SYMBICORT [Concomitant]
     Active Substance: BUDESONIDE\FORMOTEROL FUMARATE DIHYDRATE
  7. LIDOCAINE. [Concomitant]
     Active Substance: LIDOCAINE
  8. DIPHENHYDRAMINE. [Concomitant]
     Active Substance: DIPHENHYDRAMINE
  9. YAZ [Concomitant]
     Active Substance: DROSPIRENONE\ETHINYL ESTRADIOL
  10. VITAMIN C [Concomitant]
     Active Substance: ASCORBIC ACID
  11. FLONASE [Concomitant]
     Active Substance: FLUTICASONE PROPIONATE
  12. MULTIVITAMIN                       /00097801/ [Concomitant]
     Active Substance: VITAMINS

REACTIONS (2)
  - Sinusitis [Unknown]
  - Bronchitis [Unknown]
